FAERS Safety Report 16902491 (Version 2)
Quarter: 2021Q4

REPORT INFORMATION
  Report Type: Spontaneous
  Country: IN (occurrence: IN)
  Receive Date: 20191010
  Receipt Date: 20211221
  Transmission Date: 20220303
  Serious: Yes (Death, Hospitalization)
  Sender: FDA-Public Use
  Company Number: IN-PFIZER INC-2019435286

PATIENT
  Age: 76 Year
  Sex: Male

DRUGS (1)
  1. INLYTA [Suspect]
     Active Substance: AXITINIB
     Indication: Metastatic renal cell carcinoma
     Dosage: 5 MG, 2X/DAY
     Route: 048
     Dates: start: 20190907, end: 20200512

REACTIONS (3)
  - Neoplasm progression [Fatal]
  - Infection [Unknown]
  - Pleural effusion [Unknown]
